FAERS Safety Report 9806739 (Version 1)
Quarter: 2014Q1

REPORT INFORMATION
  Report Type: Spontaneous
  Country: US (occurrence: US)
  Receive Date: 20140109
  Receipt Date: 20140109
  Transmission Date: 20141002
  Serious: No
  Sender: FDA-Public Use
  Company Number: US-ENDO PHARMACEUTICALS INC.-FORT20130374

PATIENT
  Age: 58 Year
  Sex: Male
  Weight: 59.02 kg

DRUGS (7)
  1. FORTESTA [Suspect]
     Indication: BLOOD TESTOSTERONE DECREASED
     Route: 061
  2. FORTESTA [Suspect]
     Route: 061
     Dates: end: 20131029
  3. FORTESTA [Suspect]
     Route: 061
     Dates: start: 20131030
  4. METHADONE [Concomitant]
     Indication: PAIN
     Route: 048
  5. DILAUDID [Concomitant]
     Indication: PAIN
     Dosage: 8 MG
     Route: 048
  6. AMBIEN CR [Concomitant]
     Indication: INSOMNIA
     Route: 048
  7. KLONOPIN [Concomitant]
     Indication: PRODUCT USED FOR UNKNOWN INDICATION
     Route: 048

REACTIONS (2)
  - Depression [Not Recovered/Not Resolved]
  - Blood testosterone increased [Not Recovered/Not Resolved]
